FAERS Safety Report 15789673 (Version 1)
Quarter: 2019Q1

REPORT INFORMATION
  Report Type: Spontaneous
  Country: US (occurrence: US)
  Receive Date: 20190104
  Receipt Date: 20190104
  Transmission Date: 20190417
  Serious: Yes (Life-Threatening, Other)
  Sender: FDA-Public Use
  Company Number: US-PFIZER INC-2018535738

PATIENT
  Age: 9 Year
  Sex: Female

DRUGS (1)
  1. THROMBIN [Suspect]
     Active Substance: THROMBIN
     Indication: SURGERY
     Dosage: UNK
     Route: 061

REACTIONS (3)
  - Cardiac arrest [Unknown]
  - Factor V deficiency [Recovering/Resolving]
  - Haemorrhage [Recovered/Resolved]
